FAERS Safety Report 18574984 (Version 5)
Quarter: 2022Q1

REPORT INFORMATION
  Report Type: Spontaneous
  Country: CO (occurrence: CO)
  Receive Date: 20201203
  Receipt Date: 20220208
  Transmission Date: 20220423
  Serious: Yes (Hospitalization, Other)
  Sender: FDA-Public Use
  Company Number: CO-PFIZER INC-2020417199

PATIENT
  Age: 4 Year
  Sex: Male

DRUGS (2)
  1. GENOTROPIN [Suspect]
     Active Substance: SOMATROPIN
     Indication: Chronic kidney disease
     Dosage: 0.4 MG, DAILY (EVERY NIGHT)
     Route: 058
     Dates: start: 202009
  2. GENOTROPIN [Suspect]
     Active Substance: SOMATROPIN
     Indication: Renal aplasia

REACTIONS (5)
  - Complication associated with device [Unknown]
  - Peritonitis [Unknown]
  - Device delivery system issue [Unknown]
  - Device information output issue [Unknown]
  - Drug dose omission by device [Unknown]

NARRATIVE: CASE EVENT DATE: 20201001
